FAERS Safety Report 11704224 (Version 1)
Quarter: 2015Q4

REPORT INFORMATION
  Report Type: Spontaneous
  Country: US (occurrence: None)
  Receive Date: 20151105
  Receipt Date: 20151105
  Transmission Date: 20160304
  Serious: Yes (Other)
  Sender: FDA-Public Use
  Company Number: None

PATIENT
  Age: 36 Year
  Sex: Male
  Weight: 90.72 kg

DRUGS (2)
  1. CVS^S HOMEOPATHIC CONSTIPATION R 1 OZ CVS [Suspect]
     Active Substance: ALCOHOL
     Dosage: APPLY UP TO 20 DROPS IN 4OZ GL
     Route: 048
  2. HOMEOPATHIC [Suspect]
     Active Substance: HOMEOPATHICS

REACTIONS (2)
  - Intentional product misuse [None]
  - Product quality issue [None]

NARRATIVE: CASE EVENT DATE: 20151104
